FAERS Safety Report 13379745 (Version 7)
Quarter: 2017Q3

REPORT INFORMATION
  Report Type: Report from Study
  Country: AU (occurrence: AU)
  Receive Date: 20170328
  Receipt Date: 20170704
  Transmission Date: 20171127
  Serious: Yes (Other)
  Sender: FDA-Public Use
  Company Number: AU-TAKEDA-2017MPI002655

PATIENT
  Age: 89 Year
  Sex: Female
  Weight: 70 kg

DRUGS (5)
  1. VELCADE [Suspect]
     Active Substance: BORTEZOMIB
     Indication: PLASMA CELL MYELOMA
     Dosage: UNK
     Route: 058
  2. VELCADE [Suspect]
     Active Substance: BORTEZOMIB
     Dosage: 2300 ?G, 1/WEEK
     Route: 058
     Dates: start: 20161216
  3. AMLODIPINE [Concomitant]
     Active Substance: AMLODIPINE BESYLATE
     Dosage: UNK
     Route: 065
  4. ONDANSETRON [Concomitant]
     Active Substance: ONDANSETRON
     Dosage: UNK
     Route: 065
  5. METOPROLOL. [Suspect]
     Active Substance: METOPROLOL
     Dosage: UNK
     Route: 065

REACTIONS (6)
  - Hypoacusis [Not Recovered/Not Resolved]
  - Cellulitis [Recovered/Resolved]
  - Respiratory tract infection [Recovering/Resolving]
  - Fall [Recovering/Resolving]
  - Abscess neck [Unknown]
  - Bradycardia [Not Recovered/Not Resolved]

NARRATIVE: CASE EVENT DATE: 20170301
